FAERS Safety Report 13067499 (Version 8)
Quarter: 2017Q3

REPORT INFORMATION
  Report Type: Report from Study
  Country: IT (occurrence: IT)
  Receive Date: 20161228
  Receipt Date: 20170718
  Transmission Date: 20171127
  Serious: Yes (Hospitalization)
  Sender: FDA-Public Use
  Company Number: IT-ROCHE-1871167

PATIENT
  Age: 51 Year
  Sex: Female
  Weight: 43 kg

DRUGS (28)
  1. ZARZIO [Concomitant]
     Active Substance: FILGRASTIM
     Route: 065
     Dates: start: 20170202, end: 20170207
  2. FERLIXIT [Concomitant]
     Active Substance: SODIUM FERRIC GLUCONATE COMPLEX
     Indication: DUODENAL ULCER
  3. ZARZIO [Concomitant]
     Active Substance: FILGRASTIM
     Route: 065
     Dates: start: 20170222, end: 20170225
  4. PARENTERAL NUTRITION [Concomitant]
     Active Substance: AMINO ACIDS\DEXTROSE\ELECTROLYTES NOS
     Indication: NAUSEA
     Dosage: (GLUCOSE, NA:100 MEQ, K:40 MEQ, CA:10 MEQ, MG:5 MEQ, CL:100 MEQ, P:5 MEQ)
     Route: 065
     Dates: start: 20170301, end: 20170305
  5. VINCRISTINE [Suspect]
     Active Substance: VINCRISTINE
     Indication: NON-HODGKIN^S LYMPHOMA
     Dosage: MOST RECENT DOSE PRIOR TO SAE: 17/NOV/2016, 2 MG AT 15:30?MOST RECENT DOSE 2 MG: 26/JAN/2017 AT 16:2
     Route: 042
     Dates: start: 20161006
  6. METFORMIN [Concomitant]
     Active Substance: METFORMIN HYDROCHLORIDE
     Indication: DIABETES MELLITUS
  7. PARACETAMOL [Concomitant]
     Active Substance: ACETAMINOPHEN
     Route: 065
     Dates: start: 20161005, end: 20170316
  8. PREDNISONE. [Suspect]
     Active Substance: PREDNISONE
     Indication: NON-HODGKIN^S LYMPHOMA
     Dosage: MOST RECENT DOSE PRIOR TO SAE: 21/NOV/2016, 100 MG?MOST RECENT DOSE: 30/JAN/2017
     Route: 048
     Dates: start: 20161006
  9. BACTRIM [Concomitant]
     Active Substance: SULFAMETHOXAZOLE\TRIMETHOPRIM
     Indication: INFECTION PROPHYLAXIS
     Route: 065
     Dates: start: 20161005
  10. RABEPRAZOLE [Concomitant]
     Active Substance: RABEPRAZOLE
     Indication: PROPHYLAXIS AGAINST GASTROINTESTINAL ULCER
     Route: 065
     Dates: start: 20161005, end: 20161215
  11. RABEPRAZOLE [Concomitant]
     Active Substance: RABEPRAZOLE
     Route: 065
     Dates: start: 20170104
  12. TRIMETON [Concomitant]
     Active Substance: CHLORPHENIRAMINE MALEATE
     Indication: PREMEDICATION
     Route: 065
     Dates: start: 20161005, end: 20170316
  13. ZARZIO [Concomitant]
     Active Substance: FILGRASTIM
     Indication: NEUTROPENIA
     Route: 065
     Dates: start: 20161105, end: 20161108
  14. ANTRA [Concomitant]
     Active Substance: OMEPRAZOLE
     Indication: PROPHYLAXIS AGAINST GASTROINTESTINAL ULCER
     Route: 065
     Dates: start: 20161216, end: 20170104
  15. RITUXIMAB. [Suspect]
     Active Substance: RITUXIMAB
     Indication: NON-HODGKIN^S LYMPHOMA
     Dosage: MOST RECENT DOSE PRIOR TO SAE: 17/NOV/2016, 523.5 MG AT 12:10?MOST RECENT DOSE 505.88 MG: 16/FEB/201
     Route: 042
     Dates: start: 20161005
  16. CYCLOPHOSPHAMIDE. [Suspect]
     Active Substance: CYCLOPHOSPHAMIDE
     Indication: NON-HODGKIN^S LYMPHOMA
     Dosage: MOST RECENT DOSE PRIOR TO SAE: 17/NOV/2016, 1047 MG AT 14:30?MOST RECENT DOSE: 1011.75 MG: 26/JAN/20
     Route: 042
     Dates: start: 20161006
  17. ACICLOVIR [Concomitant]
     Active Substance: ACYCLOVIR
     Indication: PROPHYLAXIS
     Route: 065
     Dates: start: 20161005
  18. TACHIPIRIN [Concomitant]
     Indication: PAIN PROPHYLAXIS
     Route: 065
     Dates: start: 20161011, end: 20170324
  19. LEVOBREN [Concomitant]
     Active Substance: LEVOSULPIRIDE
     Indication: NAUSEA
     Route: 065
     Dates: start: 20161105, end: 20161117
  20. VENETOCLAX. [Suspect]
     Active Substance: VENETOCLAX
     Indication: NON-HODGKIN^S LYMPHOMA
     Dosage: MOST RECENT DOSE PRIOR TO SAE: 23/NOV/2016, 800 MG?MOST RECENT DOSE: 16/FEB/2017
     Route: 048
     Dates: start: 20161009
  21. BACTRIM [Concomitant]
     Active Substance: SULFAMETHOXAZOLE\TRIMETHOPRIM
     Route: 065
     Dates: start: 20170104
  22. PARACETAMOL [Concomitant]
     Active Substance: ACETAMINOPHEN
     Indication: GASTROINTESTINAL PAIN
     Route: 065
     Dates: start: 20161012, end: 20161027
  23. PARENTERAL NUTRITION [Concomitant]
     Active Substance: AMINO ACIDS\DEXTROSE\ELECTROLYTES NOS
     Indication: VOMITING
  24. DOXORUBICIN [Suspect]
     Active Substance: DOXORUBICIN
     Indication: NON-HODGKIN^S LYMPHOMA
     Dosage: MOST RECENT DOSE PRIOR TO SAE: 17/NOV/2016, 69.8 MG AT 14:10?MOST RECENT DOSE 67.45 MG: 26/JAN/2017
     Route: 042
     Dates: start: 20161006
  25. ZYLORIC [Concomitant]
     Active Substance: ALLOPURINOL
     Indication: PROPHYLAXIS
     Route: 065
     Dates: start: 20161005, end: 20161117
  26. ENSURE [Concomitant]
     Active Substance: AMINO ACIDS\DEXTROSE\ELECTROLYTES NOS\SOYBEAN OIL\VITAMINS
     Indication: WEIGHT INCREASED
     Route: 065
     Dates: start: 20161005, end: 20161212
  27. ZARZIO [Concomitant]
     Active Substance: FILGRASTIM
     Indication: PROPHYLAXIS
     Route: 065
     Dates: start: 20161011
  28. FERLIXIT [Concomitant]
     Active Substance: SODIUM FERRIC GLUCONATE COMPLEX
     Indication: GASTRIC ULCER
     Route: 065
     Dates: start: 201607, end: 201607

REACTIONS (2)
  - Duodenal stenosis [Recovered/Resolved]
  - Gastric stenosis [Recovered/Resolved]

NARRATIVE: CASE EVENT DATE: 20161123
